FAERS Safety Report 12554026 (Version 3)
Quarter: 2017Q1

REPORT INFORMATION
  Report Type: Report from Study
  Country: JP (occurrence: JP)
  Receive Date: 20160713
  Receipt Date: 20170301
  Transmission Date: 20170428
  Serious: Yes (Death)
  Sender: FDA-Public Use
  Company Number: JP-CELGENEUS-JPN-2016070678

PATIENT
  Age: 84 Year
  Sex: Male

DRUGS (9)
  1. LENADEX [Suspect]
     Active Substance: DEXAMETHASONE ACETATE
     Indication: PLASMA CELL MYELOMA
     Dosage: 20 MILLIGRAM
     Route: 048
     Dates: start: 20150613, end: 20150704
  2. FLUCONAZOLE. [Concomitant]
     Active Substance: FLUCONAZOLE
     Indication: PROPHYLAXIS
     Dosage: 100 MILLIGRAM
     Route: 048
  3. POMALYST [Suspect]
     Active Substance: POMALIDOMIDE
     Indication: PLASMA CELL MYELOMA
     Dosage: 3 MILLIGRAM
     Route: 048
     Dates: start: 20150613, end: 20150702
  4. LYRICA [Concomitant]
     Active Substance: PREGABALIN
     Indication: PLASMA CELL MYELOMA
     Dosage: 225 MILLIGRAM
     Route: 048
  5. ACICLOVIR [Concomitant]
     Active Substance: ACYCLOVIR
     Indication: PROPHYLAXIS
     Dosage: 200 MILLIGRAM
     Route: 048
  6. POMALYST [Suspect]
     Active Substance: POMALIDOMIDE
     Dosage: 4 MILLIGRAM
     Route: 048
     Dates: start: 20150729, end: 20150818
  7. LENADEX [Suspect]
     Active Substance: DEXAMETHASONE ACETATE
     Dosage: 20 MILLIGRAM
     Route: 048
     Dates: start: 20150729, end: 20150818
  8. BAYASPIRIN [Concomitant]
     Active Substance: ASPIRIN
     Indication: PROPHYLAXIS
     Dosage: 100 MILLIGRAM
     Route: 048
  9. BACTRAMIN [Concomitant]
     Active Substance: SULFAMETHOXAZOLE\TRIMETHOPRIM
     Indication: PROPHYLAXIS
     Dosage: .5 DOSAGE FORMS
     Route: 048

REACTIONS (4)
  - Shock [Fatal]
  - Fall [Unknown]
  - Contusion [Recovered/Resolved]
  - Small intestinal perforation [Fatal]

NARRATIVE: CASE EVENT DATE: 20150627
